FAERS Safety Report 25604820 (Version 4)
Quarter: 2025Q4

REPORT INFORMATION
  Report Type: Spontaneous
  Country: US (occurrence: US)
  Receive Date: 20250725
  Receipt Date: 20251013
  Transmission Date: 20260117
  Serious: No
  Sender: SANDOZ
  Company Number: US-SANDOZ-SDZ2025US051960

PATIENT
  Age: 64 Year
  Sex: Male

DRUGS (2)
  1. HYRIMOZ [Suspect]
     Active Substance: ADALIMUMAB-ADAZ
     Dosage: UNK, Q2W
     Route: 058
  2. HYRIMOZ [Suspect]
     Active Substance: ADALIMUMAB-ADAZ
     Indication: Granuloma annulare
     Dosage: 80 MG, OTHER, E 80MG ON DAY ONE THEN 40MG EVERY OTHER WEEK
     Route: 058

REACTIONS (5)
  - Throat irritation [Unknown]
  - Nasal congestion [Unknown]
  - Circumstance or information capable of leading to device use error [Unknown]
  - Poor quality device used [Unknown]
  - Device malfunction [Unknown]

NARRATIVE: CASE EVENT DATE: 20250721
